FAERS Safety Report 6442913-5 (Version None)
Quarter: 2009Q4

REPORT INFORMATION
  Report Type: 
  Country: None (occurrence: None)
  Receive Date: 20091113
  Receipt Date: 20091030
  Transmission Date: 20100525
  Serious: Yes (Death)
  Sender: FDA-Public Use
  Company Number: 2009291887

PATIENT
  Age: 43 Year
  Sex: Male

DRUGS (1)
  1. FRAGMIN [Suspect]
     Indication: THROMBOSIS
     Dates: start: 20090508

REACTIONS (1)
  - PANCREATIC CARCINOMA METASTATIC [None]
